FAERS Safety Report 12505303 (Version 2)
Quarter: 2017Q2

REPORT INFORMATION
  Report Type: Spontaneous
  Country: US (occurrence: US)
  Receive Date: 20160628
  Receipt Date: 20170621
  Transmission Date: 20170830
  Serious: Yes (Death)
  Sender: FDA-Public Use
  Company Number: US-INSYS THERAPEUTICS, INC-INS201505-000190

PATIENT
  Sex: Female
  Weight: 90.26 kg

DRUGS (14)
  1. DIPHENHYDRAMINE. [Concomitant]
     Active Substance: DIPHENHYDRAMINE
  2. OXYCODONE [Concomitant]
     Active Substance: OXYCODONE
  3. NICOTINE. [Concomitant]
     Active Substance: NICOTINE
  4. HYDROMORPHONE [Concomitant]
     Active Substance: HYDROMORPHONE
  5. FENTANYL. [Concomitant]
     Active Substance: FENTANYL
     Indication: SEDATION
  6. LIDOCAINE. [Concomitant]
     Active Substance: LIDOCAINE
  7. PROMETHAZINE [Concomitant]
     Active Substance: PROMETHAZINE\PROMETHAZINE HYDROCHLORIDE
  8. SUBSYS [Suspect]
     Active Substance: FENTANYL
     Indication: INTERVERTEBRAL DISC DEGENERATION
     Route: 060
     Dates: start: 201405
  9. EXALGO [Suspect]
     Active Substance: HYDROMORPHONE HYDROCHLORIDE
     Indication: INTERVERTEBRAL DISC DEGENERATION
  10. METOPROLOL. [Concomitant]
     Active Substance: METOPROLOL
  11. SUBSYS [Suspect]
     Active Substance: FENTANYL
     Indication: BACK PAIN
  12. CAFFEINE. [Concomitant]
     Active Substance: CAFFEINE
  13. HYDROXYZINE [Concomitant]
     Active Substance: HYDROXYZINE HYDROCHLORIDE
  14. ALPRAZOLAM. [Concomitant]
     Active Substance: ALPRAZOLAM

REACTIONS (3)
  - Respiratory disorder [Unknown]
  - Toxicity to various agents [Fatal]
  - Sedation [Unknown]
